FAERS Safety Report 5024970-6 (Version None)
Quarter: 2006Q2

REPORT INFORMATION
  Report Type: 
  Country: None (occurrence: None)
  Receive Date: 20060607
  Receipt Date: 20060603
  Transmission Date: 20061013
  Serious: Yes (Other)
  Sender: FDA-Public Use
  Company Number: 219517

PATIENT
  Age: 73 Year
  Sex: Female

DRUGS (2)
  1. ACTIVASE [Suspect]
     Indication: RETINAL HAEMORRHAGE
     Dosage: 0.1 ML, SINGLE, INTRAVITREAL
     Route: 050
  2. SULFUR HEXAFLUORIDE GAS (SULFUR HEXAFLUORIDE GAS) [Concomitant]

REACTIONS (6)
  - ENDOPHTHALMITIS [None]
  - OPTIC ATROPHY [None]
  - PAIN [None]
  - PROCEDURAL COMPLICATION [None]
  - STREPTOCOCCAL SEROLOGY POSITIVE [None]
  - THERAPEUTIC PRODUCT CONTAMINATION [None]
